FAERS Safety Report 9068883 (Version 1)
Quarter: 2013Q1

REPORT INFORMATION
  Report Type: Spontaneous
  Country: US (occurrence: None)
  Receive Date: 20130212
  Receipt Date: 20130212
  Transmission Date: 20140127
  Serious: Yes (Other)
  Sender: FDA-Public Use
  Company Number: None

PATIENT
  Age: 41 Year
  Sex: Male

DRUGS (1)
  1. SUTENT [Suspect]
     Indication: NEOPLASM MALIGNANT
     Dosage: 3 TABLETS
     Route: 048
     Dates: start: 20120728, end: 20130207

REACTIONS (4)
  - Fatigue [None]
  - Vomiting [None]
  - Local swelling [None]
  - Electrocardiogram abnormal [None]
